FAERS Safety Report 7458797-2 (Version None)
Quarter: 2011Q2

REPORT INFORMATION
  Report Type: 
  Country: None (occurrence: None)
  Receive Date: 20110504
  Receipt Date: 20110427
  Transmission Date: 20111010
  Serious: Yes (Hospitalization, Other)
  Sender: FDA-Public Use
  Company Number: GB-PFIZER INC-2011063196

PATIENT
  Age: 50 Year
  Sex: Female

DRUGS (5)
  1. CARBAMAZEPINE [Suspect]
  2. PARACETAMOL [Suspect]
     Dosage: 4G, DAILY
     Route: 042
  3. FLUCLOXACILLIN [Suspect]
     Dosage: 8G, UNK
     Route: 042
  4. PHENOBARBITAL [Suspect]
  5. PHENYTOIN [Suspect]

REACTIONS (7)
  - TACHYCARDIA [None]
  - DRUG INTERACTION [None]
  - HYPOTENSION [None]
  - DEPRESSED LEVEL OF CONSCIOUSNESS [None]
  - SEPSIS [None]
  - METABOLIC ACIDOSIS [None]
  - TACHYPNOEA [None]
